FAERS Safety Report 12703662 (Version 1)
Quarter: 2016Q3

REPORT INFORMATION
  Report Type: Spontaneous
  Country: CN (occurrence: CN)
  Receive Date: 20160831
  Receipt Date: 20160831
  Transmission Date: 20161109
  Serious: Yes (Other)
  Sender: FDA-Public Use
  Company Number: CN-JNJFOC-20160825558

PATIENT
  Age: 31 Year
  Sex: Male

DRUGS (1)
  1. SPORANOX [Suspect]
     Active Substance: ITRACONAZOLE
     Indication: PSEUDALLESCHERIA INFECTION
     Route: 048
     Dates: start: 20151102, end: 20151113

REACTIONS (2)
  - Hepatocellular injury [Recovering/Resolving]
  - Xanthochromia [Unknown]

NARRATIVE: CASE EVENT DATE: 20151113
